FAERS Safety Report 25405004 (Version 1)
Quarter: 2025Q2

REPORT INFORMATION
  Report Type: Spontaneous
  Country: JP (occurrence: JP)
  Receive Date: 20250606
  Receipt Date: 20250606
  Transmission Date: 20250717
  Serious: Yes (Other)
  Sender: RANBAXY
  Company Number: JP-SUN PHARMACEUTICAL INDUSTRIES LTD-2025RR-510620

PATIENT
  Age: 76 Year
  Sex: Male

DRUGS (12)
  1. DIAZEPAM [Suspect]
     Active Substance: DIAZEPAM
     Indication: Epilepsy
     Route: 065
  2. LEVETIRACETAM [Suspect]
     Active Substance: LEVETIRACETAM
     Indication: Epilepsy
     Route: 065
  3. MIDAZOLAM [Suspect]
     Active Substance: MIDAZOLAM
     Indication: Epilepsy
     Route: 065
  4. TOPIRAMATE [Suspect]
     Active Substance: TOPIRAMATE
     Indication: Epilepsy
     Route: 065
  5. LACOSAMIDE [Suspect]
     Active Substance: LACOSAMIDE
     Indication: Epilepsy
     Route: 065
  6. METHYLPREDNISOLONE [Suspect]
     Active Substance: METHYLPREDNISOLONE
     Indication: Seizure
     Dosage: 1000 MILLIGRAM, DAILY, 2 COURSES (DAY 6 AND 46)
     Route: 042
  7. PHENOBARBITAL [Suspect]
     Active Substance: PHENOBARBITAL
     Indication: Seizure
     Route: 065
  8. PHENOBARBITAL [Suspect]
     Active Substance: PHENOBARBITAL
     Indication: Epilepsy
  9. FOSPHENYTOIN [Suspect]
     Active Substance: FOSPHENYTOIN
     Indication: Epilepsy
     Route: 065
  10. PROPOFOL [Suspect]
     Active Substance: PROPOFOL
     Indication: Epilepsy
     Route: 065
  11. THIOPENTAL [Suspect]
     Active Substance: THIOPENTAL
     Indication: Epilepsy
     Route: 065
  12. THIAMYLAL [Suspect]
     Active Substance: THIAMYLAL
     Indication: Epilepsy
     Route: 065

REACTIONS (3)
  - Nephropathy toxic [Unknown]
  - Hyperbilirubinaemia [Unknown]
  - Drug ineffective [Unknown]
